FAERS Safety Report 10159682 (Version 2)
Quarter: 2014Q2

REPORT INFORMATION
  Report Type: Spontaneous
  Country: US (occurrence: US)
  Receive Date: 20140508
  Receipt Date: 20140617
  Transmission Date: 20141212
  Serious: Yes (Hospitalization)
  Sender: FDA-Public Use
  Company Number: US-VIROPHARMA INCORPORATED-20140429CINRY6289

PATIENT
  Sex: Female

DRUGS (2)
  1. CINRYZE [Suspect]
     Indication: HEREDITARY ANGIOEDEMA
     Dosage: 1000 UNITS, OTHER (EVERY 4 DAYS)
     Route: 042
     Dates: start: 20130329
  2. CINRYZE [Suspect]
     Indication: PROPHYLAXIS

REACTIONS (3)
  - Arthralgia [Recovered/Resolved]
  - Abdominal pain upper [Unknown]
  - Infusion site rash [Unknown]
